FAERS Safety Report 25886668 (Version 1)
Quarter: 2025Q4

REPORT INFORMATION
  Report Type: Spontaneous
  Country: CN (occurrence: CN)
  Receive Date: 20251006
  Receipt Date: 20251006
  Transmission Date: 20260117
  Serious: Yes (Other)
  Sender: TETRAPHASE PHARMACEUTICALS, INC.
  Company Number: CN-TETRAPHASE PHARMACEUTICALS, INC-2025-ISTX-000187

PATIENT

DRUGS (1)
  1. XERAVA [Suspect]
     Active Substance: ERAVACYCLINE DIHYDROCHLORIDE
     Indication: Product used for unknown indication
     Dosage: UNK

REACTIONS (1)
  - Hallucination [Unknown]
